FAERS Safety Report 6636236-9 (Version None)
Quarter: 2010Q1

REPORT INFORMATION
  Report Type: 
  Country: None (occurrence: None)
  Receive Date: 20100316
  Receipt Date: 20100304
  Transmission Date: 20100710
  Serious: Yes (Other)
  Sender: FDA-Public Use
  Company Number: JP-PFIZER INC-2010026035

PATIENT

DRUGS (3)
  1. AZULFIDINE [Suspect]
     Route: 048
     Dates: start: 20100119
  2. LOXONIN [Concomitant]
  3. MUCOSTA [Concomitant]

REACTIONS (2)
  - BUCCAL MUCOSAL ROUGHENING [None]
  - ECZEMA [None]
